FAERS Safety Report 19179832 (Version 1)
Quarter: 2021Q2

REPORT INFORMATION
  Report Type: Spontaneous
  Country: US (occurrence: US)
  Receive Date: 20210424
  Receipt Date: 20210424
  Transmission Date: 20210717
  Serious: Yes (Other)
  Sender: FDA-Public Use
  Company Number: None

PATIENT
  Age: 67 Year
  Sex: Female
  Weight: 56.25 kg

DRUGS (6)
  1. ALPROZOLAM [Concomitant]
     Active Substance: ALPRAZOLAM
  2. VIT D 2000 [Concomitant]
  3. VENLAFAXINE [Concomitant]
     Active Substance: VENLAFAXINE HYDROCHLORIDE
  4. PROLIA [Suspect]
     Active Substance: DENOSUMAB
     Indication: OSTEOPOROSIS
     Dosage: ?          QUANTITY:1 DF DOSAGE FORM;OTHER FREQUENCY:EVERY 6 MONTHS;?
     Route: 058
     Dates: end: 20210301
  5. CETIRIZINE HYDROCHLORIDE. [Concomitant]
     Active Substance: CETIRIZINE HYDROCHLORIDE
  6. CALCIUM [Concomitant]
     Active Substance: CALCIUM

REACTIONS (1)
  - Exostosis of jaw [None]

NARRATIVE: CASE EVENT DATE: 20200601
